FAERS Safety Report 13856736 (Version 1)
Quarter: 2017Q3

REPORT INFORMATION
  Report Type: Spontaneous
  Country: US (occurrence: US)
  Receive Date: 20170810
  Receipt Date: 20170810
  Transmission Date: 20171127
  Serious: No
  Sender: FDA-Public Use
  Company Number: US-ROCHE-1348126

PATIENT
  Age: 7 Year
  Sex: Male
  Weight: 22.7 kg

DRUGS (1)
  1. TAMIFLU [Suspect]
     Active Substance: OSELTAMIVIR PHOSPHATE
     Indication: INFLUENZA
     Dosage: FOR 10 DAYS
     Route: 065
     Dates: start: 20140205, end: 20140210

REACTIONS (5)
  - Abnormal behaviour [Unknown]
  - Feeling abnormal [Unknown]
  - Sleep disorder [Unknown]
  - Hallucination, visual [Unknown]
  - Hallucination [Unknown]

NARRATIVE: CASE EVENT DATE: 20140206
